FAERS Safety Report 8544832-7 (Version None)
Quarter: 2012Q2

REPORT INFORMATION
  Report Type: 
  Country: None (occurrence: None)
  Receive Date: 20120416
  Receipt Date: 20100421
  Transmission Date: 20120825
  Serious: Yes (Disabling, Other)
  Sender: FDA-Public Use
  Company Number: PHHY2010US24495

PATIENT
  Age: 54 Year
  Sex: Male

DRUGS (7)
  1. COREG [Concomitant]
  2. NEXIUM [Concomitant]
  3. DIOVAN [Suspect]
     Indication: HYPERTENSION
     Dosage: 160 MG, QD, ORAL
     Route: 048
     Dates: start: 20091201, end: 20100401
  4. JANUVIA [Concomitant]
  5. AMARYL [Concomitant]
  6. LANTUS [Concomitant]
  7. ALLEGRA [Concomitant]

REACTIONS (4)
  - BLOOD POTASSIUM INCREASED [None]
  - GAIT DISTURBANCE [None]
  - RENAL FAILURE ACUTE [None]
  - BACK PAIN [None]
